FAERS Safety Report 10021310 (Version 1)
Quarter: 2014Q1

REPORT INFORMATION
  Report Type: Spontaneous
  Country: US (occurrence: None)
  Receive Date: 20140318
  Receipt Date: 20140318
  Transmission Date: 20141002
  Serious: Yes (Other)
  Sender: FDA-Public Use
  Company Number: None

PATIENT
  Age: 38 Year
  Sex: Female
  Weight: 58.06 kg

DRUGS (1)
  1. TECFIDERA [Suspect]
     Indication: MULTIPLE SCLEROSIS
     Dosage: 1 PILL TWICE DAILY TAKEN BY MOUTH
     Route: 048
     Dates: start: 20140101, end: 20140316

REACTIONS (9)
  - Lethargy [None]
  - Palpitations [None]
  - Heart rate increased [None]
  - Blood pressure decreased [None]
  - Musculoskeletal pain [None]
  - Hypoaesthesia [None]
  - Vomiting [None]
  - Night sweats [None]
  - Dehydration [None]
